FAERS Safety Report 16608033 (Version 1)
Quarter: 2019Q3

REPORT INFORMATION
  Report Type: Spontaneous
  Country: DE (occurrence: DE)
  Receive Date: 20190722
  Receipt Date: 20190722
  Transmission Date: 20191004
  Serious: Yes (Hospitalization)
  Sender: FDA-Public Use
  Company Number: DE-PFIZER INC-2019302138

PATIENT
  Age: 61 Year
  Sex: Female
  Weight: 52 kg

DRUGS (13)
  1. FILGRASTIM [Concomitant]
     Active Substance: FILGRASTIM
     Dosage: UNK (08AUG2017, INJECTION / INFUSION)
     Route: 058
  2. PANTOPRAZOLE [Concomitant]
     Active Substance: PANTOPRAZOLE
     Dosage: 20 MG, 1X/DAY (1-0-0)
     Route: 048
  3. MAGNESIUM [Concomitant]
     Active Substance: MAGNESIUM
     Dosage: UNK (1-1-0)
     Route: 048
  4. LEVOTHYROXINE SODIUM. [Concomitant]
     Active Substance: LEVOTHYROXINE SODIUM
     Dosage: 75 UG, 1X/DAY (1-0-0)
     Route: 048
  5. CARBOPLATIN. [Suspect]
     Active Substance: CARBOPLATIN
     Dosage: 5 AUC, 05AUG2017, INJECTION / INFUSION
     Route: 042
  6. DEXAMETHASONE. [Concomitant]
     Active Substance: DEXAMETHASONE
     Dosage: 12 MG, 2X/DAY (1-0-1)
     Dates: start: 20170803
  7. ONDANSETRON [Concomitant]
     Active Substance: ONDANSETRON
     Dosage: 8 MG, 1X/DAY (1-0-1; 05AUG2017-08AUG2017, INJECTION / INFUSION)
     Route: 048
  8. MESNA. [Concomitant]
     Active Substance: MESNA
     Dosage: 5000 MG/M2, UNK (FOR 24 HRS, 05AUG2017-06AUG2017, INJECTION / INFUSION)
  9. MESNA. [Concomitant]
     Active Substance: MESNA
     Dosage: 1000 MG/M2, UNK (05AUG2017 INJECTION / INFUSION)
     Route: 042
  10. COTRIM FORTE L.U.T. [Concomitant]
     Dosage: 800 UNK, UNK
     Route: 048
  11. ETOPOSIDE. [Suspect]
     Active Substance: ETOPOSIDE
     Dosage: 100 UNK, UNK
     Route: 042
  12. IFOSFAMIDE. [Suspect]
     Active Substance: IFOSFAMIDE
     Dosage: 5000 MG/M2, UNK (05AUG2018 INJECTION / INFUSION)
     Route: 042
  13. DEXAMETHASONE. [Concomitant]
     Active Substance: DEXAMETHASONE
     Dosage: 8 MG, UNK (04AUG2017-06AUG2017)
     Route: 048

REACTIONS (4)
  - Pyrexia [Unknown]
  - Headache [Unknown]
  - Mucosal inflammation [Unknown]
  - Nausea [Unknown]
